FAERS Safety Report 13512850 (Version 1)
Quarter: 2017Q2

REPORT INFORMATION
  Report Type: Spontaneous
  Country: HU (occurrence: HU)
  Receive Date: 20170504
  Receipt Date: 20170504
  Transmission Date: 20170830
  Serious: Yes (Hospitalization, Other)
  Sender: FDA-Public Use
  Company Number: HU-FRESENIUS KABI-FK201703476

PATIENT
  Age: 76 Year
  Sex: Female

DRUGS (16)
  1. BISOBLOCK [Concomitant]
     Active Substance: BISOPROLOL FUMARATE
     Indication: CARDIOVASCULAR SYMPTOM
     Route: 048
  2. ONDANSETRON KABI [Concomitant]
     Active Substance: ONDANSETRON
     Indication: PREMEDICATION
     Route: 042
     Dates: start: 20170411, end: 20170411
  3. CLEXANE [Concomitant]
     Active Substance: ENOXAPARIN SODIUM
     Indication: THROMBOSIS PROPHYLAXIS
     Route: 058
  4. FUROSEMID-CHINOIN [Concomitant]
     Indication: ASCITES
     Route: 048
  5. COVEREX [Concomitant]
     Indication: HYPERTENSION
     Route: 048
  6. SUPRASTIN [Concomitant]
     Active Substance: CHLOROPYRAMINE HYDROCHLORIDE
     Indication: PREMEDICATION
     Route: 048
     Dates: start: 20170410, end: 20170411
  7. PANTOPRAZOLE [Concomitant]
     Active Substance: PANTOPRAZOLE
     Indication: PREMEDICATION
     Route: 048
     Dates: start: 20170410, end: 20170411
  8. PACLITAXEL 6MG/ML CONCENTRATE FOR SOLUTION FOR INFUSION [Suspect]
     Active Substance: PACLITAXEL
     Indication: RETROPERITONEAL CANCER
     Route: 041
     Dates: start: 20170411, end: 20170411
  9. CALCIMUSC [Concomitant]
     Active Substance: CALCIUM GLUCONATE
     Indication: PREMEDICATION
     Route: 065
     Dates: start: 20170411, end: 20170411
  10. CORDARONE [Concomitant]
     Active Substance: AMIODARONE HYDROCHLORIDE
     Indication: ARRHYTHMIA
     Route: 048
  11. QUAMATEL [Concomitant]
     Active Substance: FAMOTIDINE
     Indication: PREMEDICATION
     Route: 042
     Dates: start: 20170411, end: 20170411
  12. VEROSPIRON [Concomitant]
     Active Substance: SPIRONOLACTONE
     Indication: ASCITES
     Route: 048
  13. FAMOTIDINE. [Concomitant]
     Active Substance: FAMOTIDINE
     Indication: PREMEDICATION
     Route: 048
     Dates: start: 20170410, end: 20170411
  14. C VITAMIN [Concomitant]
     Indication: ANAEMIA PROPHYLAXIS
     Route: 048
  15. SOLU-MEDROL [Concomitant]
     Active Substance: METHYLPREDNISOLONE SODIUM SUCCINATE
     Indication: PREMEDICATION
     Route: 042
     Dates: start: 20170411, end: 20170411
  16. NEO-FERRO-FOLGAMMA [Concomitant]
     Indication: ANAEMIA PROPHYLAXIS
     Route: 048

REACTIONS (4)
  - Asphyxia [Recovered/Resolved]
  - Erythema [Recovered/Resolved]
  - Blood pressure increased [Recovered/Resolved]
  - Heart rate increased [Recovered/Resolved]

NARRATIVE: CASE EVENT DATE: 20170411
